FAERS Safety Report 8074072-X (Version None)
Quarter: 2012Q1

REPORT INFORMATION
  Report Type: 
  Country: None (occurrence: None)
  Receive Date: 20120126
  Receipt Date: 20120120
  Transmission Date: 20120608
  Serious: Yes (Death, Life-Threatening, Hospitalization)
  Sender: FDA-Public Use
  Company Number: US-CELGENEUS-163-21880-11123795

PATIENT
  Sex: Male
  Weight: 79.5 kg

DRUGS (23)
  1. ZOLPIDEM [Concomitant]
     Route: 065
  2. ACIDOPHILUS [Concomitant]
     Route: 048
     Dates: start: 20111216
  3. PROTONIX [Concomitant]
     Dosage: 40 MILLIGRAM
     Route: 041
  4. MAXIPIME [Concomitant]
     Dosage: 1 GRAM
     Route: 041
  5. SODIUM CHLORIDE [Concomitant]
     Dosage: 1000 MILLILITER
     Route: 041
  6. CORDARONE [Concomitant]
     Dosage: 200 MILLIGRAM
     Route: 048
  7. REVLIMID [Suspect]
     Dosage: 50 MILLIGRAM
     Route: 048
     Dates: start: 20111216, end: 20111225
  8. TRIAMCINOLONE ACETONIDE [Concomitant]
     Route: 061
  9. PLATELETS [Concomitant]
     Dosage: 2 UNITS
     Route: 041
     Dates: start: 20111201
  10. ONDANSETRON HCL [Concomitant]
     Dosage: 4 MILLIGRAM
     Route: 048
  11. AMBIEN [Concomitant]
     Dosage: 5 MILLIGRAM
     Route: 048
  12. XOPENEX [Concomitant]
     Dosage: 1.25MG/0.5ML
     Route: 065
  13. COLACE [Concomitant]
     Dosage: 100 MILLIGRAM
     Route: 048
  14. MORPHINE [Concomitant]
     Dosage: 2 MILLIGRAM
     Route: 041
  15. POTASSIUM CHLORIDE [Concomitant]
     Dosage: 40 MILLIEQUIVALENTS
     Route: 041
  16. SODIUM CHLORIDE [Concomitant]
     Dosage: 500 MILLILITER
     Route: 041
  17. ACETAMINOPHEN [Concomitant]
     Dosage: 650 MILLIGRAM
     Route: 048
  18. MAGNESIUM HYDROXIDE TAB [Concomitant]
     Dosage: 30 MILLILITER
     Route: 048
  19. ZOSYN [Concomitant]
     Dosage: 3.375 GRAM
     Route: 041
  20. MILK OF MAGNESIA TAB [Concomitant]
     Dosage: 10 MILLILITER
     Route: 048
  21. AMOXIL [Concomitant]
     Dosage: 500 MILLIGRAM
     Route: 048
     Dates: start: 20111216
  22. RED BLOOD CELLS [Concomitant]
     Route: 041
  23. NITROSTAT [Concomitant]
     Dosage: .4 MILLIGRAM
     Route: 048

REACTIONS (4)
  - SEPTIC SHOCK [None]
  - ATRIAL FLUTTER [None]
  - PNEUMONIA [None]
  - RENAL FAILURE ACUTE [None]
